FAERS Safety Report 11285906 (Version 1)
Quarter: 2015Q3

REPORT INFORMATION
  Report Type: Spontaneous
  Country: US (occurrence: US)
  Receive Date: 20150721
  Receipt Date: 20150721
  Transmission Date: 20151125
  Serious: No
  Sender: FDA-Public Use
  Company Number: US-AMGEN-USASP2015070771

PATIENT
  Age: 69 Year
  Sex: Female

DRUGS (2)
  1. ENBREL [Suspect]
     Active Substance: ETANERCEPT
     Indication: RHEUMATOID ARTHRITIS
     Dosage: 50 MG, QWK
     Route: 065
     Dates: start: 2014
  2. CODEINE [Concomitant]
     Active Substance: CODEINE
     Dosage: UNK

REACTIONS (4)
  - Malaise [Unknown]
  - Hot flush [Unknown]
  - Nausea [Unknown]
  - Feeling abnormal [Unknown]
